FAERS Safety Report 12438948 (Version 1)
Quarter: 2016Q2

REPORT INFORMATION
  Report Type: Spontaneous
  Country: US (occurrence: US)
  Receive Date: 20160606
  Receipt Date: 20160606
  Transmission Date: 20160815
  Serious: Yes (Hospitalization, Other)
  Sender: FDA-Public Use
  Company Number: US-MDT-ADR-2016-00208

PATIENT
  Age: 54 Year
  Sex: Female

DRUGS (2)
  1. BACLOFEN. [Suspect]
     Active Substance: BACLOFEN
     Route: 037
  2. TEGRETOL [Suspect]
     Active Substance: CARBAMAZEPINE
     Dosage: ONE PER NIGHT AS NEEDED
     Route: 048

REACTIONS (3)
  - No therapeutic response [Recovered/Resolved]
  - Drug withdrawal syndrome [Recovered/Resolved]
  - Cystitis [Recovered/Resolved]
